FAERS Safety Report 9798166 (Version 1)
Quarter: 2014Q1

REPORT INFORMATION
  Report Type: Spontaneous
  Country: FR (occurrence: FR)
  Receive Date: 20140106
  Receipt Date: 20140106
  Transmission Date: 20141002
  Serious: Yes (Life-Threatening)
  Sender: FDA-Public Use
  Company Number: FR-SA-2013SA136054

PATIENT
  Age: 7 Year
  Sex: Male
  Weight: 20 kg

DRUGS (6)
  1. RIFAMPICIN [Suspect]
     Indication: MENINGITIS STAPHYLOCOCCAL
     Route: 042
     Dates: start: 20121216, end: 20121219
  2. CLAFORAN [Suspect]
     Indication: MENINGITIS STAPHYLOCOCCAL
     Route: 042
     Dates: start: 20121204, end: 20121219
  3. VANCOMYCINE [Suspect]
     Indication: MENINGITIS STAPHYLOCOCCAL
     Route: 042
     Dates: start: 20121207, end: 20121219
  4. NALBUPHINE [Concomitant]
  5. PARACETAMOL [Concomitant]
  6. FOSFOCINE [Concomitant]

REACTIONS (3)
  - Anaemia [Recovered/Resolved]
  - Neutropenia [Recovered/Resolved]
  - Agranulocytosis [Recovered/Resolved]
